FAERS Safety Report 25269006 (Version 2)
Quarter: 2025Q2

REPORT INFORMATION
  Report Type: Spontaneous
  Country: CH (occurrence: CH)
  Receive Date: 20250505
  Receipt Date: 20250524
  Transmission Date: 20250716
  Serious: Yes (Hospitalization)
  Sender: TAKEDA
  Company Number: CH-TAKEDA-2025TUS042150

PATIENT
  Sex: Male

DRUGS (1)
  1. LISDEXAMFETAMINE DIMESYLATE [Suspect]
     Active Substance: LISDEXAMFETAMINE DIMESYLATE
     Indication: Product used for unknown indication

REACTIONS (10)
  - Dependent personality disorder [Unknown]
  - Personality disorder [Unknown]
  - Nervousness [Unknown]
  - Withdrawal syndrome [Unknown]
  - Fatigue [Unknown]
  - Depression [Unknown]
  - Irritability [Unknown]
  - Blood pressure increased [Unknown]
  - Dry mouth [Unknown]
  - Product use issue [Unknown]
